FAERS Safety Report 8471979-6 (Version None)
Quarter: 2012Q2

REPORT INFORMATION
  Report Type: 
  Country: None (occurrence: None)
  Receive Date: 20120627
  Receipt Date: 20120618
  Transmission Date: 20120825
  Serious: Yes (Other)
  Sender: FDA-Public Use
  Company Number: US-ABBOTT-12P-163-0947543-00

PATIENT
  Sex: Male
  Weight: 124.85 kg

DRUGS (6)
  1. ZOLOFT [Concomitant]
     Indication: POST-TRAUMATIC STRESS DISORDER
  2. LISINOPRIL [Concomitant]
     Indication: HYPERTENSION
  3. HUMIRA [Suspect]
     Indication: PSORIATIC ARTHROPATHY
     Route: 058
     Dates: start: 20120601
  4. VALTREX [Concomitant]
     Indication: PRODUCT USED FOR UNKNOWN INDICATION
  5. HUMIRA [Suspect]
     Indication: PSORIASIS
     Route: 058
     Dates: start: 20080101, end: 20100801
  6. ACIPHEX [Concomitant]
     Indication: BARRETT'S OESOPHAGUS

REACTIONS (8)
  - SKIN GRAFT FAILURE [None]
  - IMPAIRED HEALING [None]
  - SKIN DISCOLOURATION [None]
  - POOR PERIPHERAL CIRCULATION [None]
  - CAPILLARY LEAK SYNDROME [None]
  - SKIN NECROSIS [None]
  - PERIPHERAL VASCULAR DISORDER [None]
  - CAPILLARY FRAGILITY [None]
